FAERS Safety Report 21164027 (Version 2)
Quarter: 2022Q3

REPORT INFORMATION
  Report Type: Spontaneous
  Country: JP (occurrence: JP)
  Receive Date: 20220803
  Receipt Date: 20220831
  Transmission Date: 20221027
  Serious: Yes (Hospitalization)
  Sender: FDA-Public Use
  Company Number: JP-MSD-M2022-31041

PATIENT
  Age: 8 Decade
  Sex: Male

DRUGS (1)
  1. LAGEVRIO [Suspect]
     Active Substance: MOLNUPIRAVIR
     Indication: COVID-19 treatment
     Dosage: 400 MILLIGRAM, BID
     Route: 048

REACTIONS (2)
  - Adverse event [Recovering/Resolving]
  - Prescribed underdose [Unknown]
